FAERS Safety Report 8064343-5 (Version None)
Quarter: 2012Q1

REPORT INFORMATION
  Report Type: 
  Country: None (occurrence: None)
  Receive Date: 20120123
  Receipt Date: 20120119
  Transmission Date: 20120608
  Serious: Yes (Other)
  Sender: FDA-Public Use
  Company Number: US-PFIZER INC-2012016079

PATIENT
  Sex: Female
  Weight: 72.562 kg

DRUGS (11)
  1. LOVAZA [Concomitant]
     Dosage: UNK
  2. LIPITOR [Suspect]
     Indication: BLOOD CHOLESTEROL ABNORMAL
     Dosage: 20 MG, DAILY
     Route: 048
     Dates: start: 20110101, end: 20120102
  3. ALLEGRA [Concomitant]
     Dosage: 180 MG, DAILY
  4. SYNTHROID [Concomitant]
     Dosage: 5 MG, 1X/DAY
     Route: 048
  5. NASACORT [Concomitant]
     Dosage: UNK, DAILY
  6. IBUPROFEN (ADVIL) [Concomitant]
     Dosage: 400 MG, 4X/DAY
     Route: 048
  7. NITROFURANTOIN [Concomitant]
     Dosage: 100 MG, DAILY
  8. CALCIUM CARBONATE/ERGOCALCIFEROL [Concomitant]
     Dosage: UNK, DAILY
     Route: 048
  9. VESICARE [Concomitant]
     Dosage: 5 MG, DAILY
     Route: 048
  10. FLAXSEED OIL [Concomitant]
     Indication: DRY EYE
     Dosage: 1000 MG, DAILY
  11. MULTI-VITAMINS [Concomitant]
     Dosage: UNK, DAILY

REACTIONS (5)
  - TENDON PAIN [None]
  - ARTHRALGIA [None]
  - FEELING ABNORMAL [None]
  - LIGAMENT PAIN [None]
  - INFECTION [None]
